FAERS Safety Report 4459257-3 (Version None)
Quarter: 2004Q3

REPORT INFORMATION
  Report Type: 
  Country: None (occurrence: None)
  Receive Date: 20040922
  Receipt Date: 20040922
  Transmission Date: 20050211
  Serious: Yes (Life-Threatening, Hospitalization)
  Sender: FDA-Public Use
  Company Number: None

PATIENT
  Age: 21 Year
  Sex: Female
  Weight: 61.2356 kg

DRUGS (1)
  1. ORTHO EVRA [Suspect]
     Indication: CONTRACEPTION
     Dosage: 150 MG 1 TIME WEEKLY TRANSDERMAL
     Route: 062
     Dates: start: 20040715, end: 20040828

REACTIONS (1)
  - CEREBRAL ARTERY OCCLUSION [None]
